FAERS Safety Report 24254796 (Version 1)
Quarter: 2024Q3

REPORT INFORMATION
  Report Type: Report from Study
  Country: US (occurrence: None)
  Receive Date: 20240827
  Receipt Date: 20240827
  Transmission Date: 20241017
  Serious: Yes (Other)
  Sender: ASTRAZENECA
  Company Number: 2024A190057

PATIENT
  Sex: Female

DRUGS (1)
  1. CALQUENCE [Suspect]
     Active Substance: ACALABRUTINIB
     Indication: Chronic lymphocytic leukaemia
     Route: 048
     Dates: start: 202301

REACTIONS (8)
  - Fall [Unknown]
  - Limb injury [Unknown]
  - Glaucoma [Unknown]
  - Contusion [Unknown]
  - Emotional disorder [Unknown]
  - Eye disorder [Unknown]
  - Visual impairment [Unknown]
  - Pain [Unknown]
